FAERS Safety Report 12908080 (Version 2)
Quarter: 2022Q3

REPORT INFORMATION
  Report Type: Spontaneous
  Country: US (occurrence: US)
  Receive Date: 20161103
  Receipt Date: 20220909
  Transmission Date: 20221026
  Serious: No
  Sender: FDA-Public Use
  Company Number: US-PERRIGO-16US016468

PATIENT

DRUGS (4)
  1. MESALAMINE [Suspect]
     Active Substance: MESALAMINE
     Indication: Colitis ulcerative
     Dosage: 1.3 G, QHS
     Route: 054
     Dates: start: 20160518, end: 20160523
  2. MESALAMINE [Suspect]
     Active Substance: MESALAMINE
     Dosage: UNK, QD
     Route: 065
     Dates: start: 20220815, end: 20220822
  3. GLYCOPYRROLATE                     /00196202/ [Concomitant]
     Indication: Irritable bowel syndrome
     Dosage: UNK
     Route: 065
     Dates: start: 201603
  4. HYOSCYAMINE [Concomitant]
     Active Substance: HYOSCYAMINE
     Indication: Irritable bowel syndrome
     Dosage: UNK
     Route: 065

REACTIONS (4)
  - Drug ineffective [Unknown]
  - Underdose [Unknown]
  - Product dose omission issue [Unknown]
  - Product packaging issue [Unknown]

NARRATIVE: CASE EVENT DATE: 20160518
